FAERS Safety Report 10687991 (Version 1)
Quarter: 2015Q1

REPORT INFORMATION
  Report Type: Report from Study
  Country: DK (occurrence: DE)
  Receive Date: 20150102
  Receipt Date: 20150102
  Transmission Date: 20150720
  Serious: Yes (Hospitalization)
  Sender: FDA-Public Use
  Company Number: DE-FRI-1000073415

PATIENT
  Age: 50 Year
  Sex: Female

DRUGS (10)
  1. ESCITALOPRAM [Interacting]
     Active Substance: ESCITALOPRAM OXALATE
     Dosage: 20 MG
     Route: 048
     Dates: start: 20130302
  2. VENLAFAXINE [Interacting]
     Active Substance: VENLAFAXINE HYDROCHLORIDE
     Indication: PRODUCT USED FOR UNKNOWN INDICATION
     Dosage: 150 MG
     Route: 048
     Dates: start: 20130225, end: 20130227
  3. VENLAFAXINE [Interacting]
     Active Substance: VENLAFAXINE HYDROCHLORIDE
     Dosage: 75 MG
     Route: 048
     Dates: start: 20130228, end: 20130228
  4. ESCITALOPRAM [Interacting]
     Active Substance: ESCITALOPRAM OXALATE
     Dosage: 10 MG
     Route: 048
     Dates: start: 20130221, end: 20130222
  5. ESCITALOPRAM [Suspect]
     Active Substance: ESCITALOPRAM OXALATE
     Indication: PRODUCT USED FOR UNKNOWN INDICATION
     Dosage: 10 MG
     Route: 048
     Dates: start: 20130109, end: 20130116
  6. ABILIFY [Interacting]
     Active Substance: ARIPIPRAZOLE
     Indication: PRODUCT USED FOR UNKNOWN INDICATION
     Dosage: 5 MG
     Route: 048
     Dates: start: 20130202, end: 20130305
  7. ABILIFY [Interacting]
     Active Substance: ARIPIPRAZOLE
     Dosage: 10 MG
     Route: 048
     Dates: start: 20130306
  8. ESCITALOPRAM [Interacting]
     Active Substance: ESCITALOPRAM OXALATE
     Dosage: 20 MG
     Route: 048
     Dates: start: 20130117, end: 20130220
  9. ESCITALOPRAM [Interacting]
     Active Substance: ESCITALOPRAM OXALATE
     Dosage: 10 MG
     Route: 048
     Dates: start: 20130228, end: 20130301
  10. REMERGIL [Concomitant]
     Active Substance: MIRTAZAPINE
     Indication: PRODUCT USED FOR UNKNOWN INDICATION
     Route: 048

REACTIONS (3)
  - Drug interaction [Recovered/Resolved]
  - Restlessness [Recovered/Resolved]
  - Agitation [Recovered/Resolved]

NARRATIVE: CASE EVENT DATE: 20130224
